FAERS Safety Report 15834959 (Version 2)
Quarter: 2019Q2

REPORT INFORMATION
  Report Type: Spontaneous
  Country: US (occurrence: US)
  Receive Date: 20190116
  Receipt Date: 20190416
  Transmission Date: 20190711
  Serious: No
  Sender: FDA-Public Use
  Company Number: US-CHILTERN-US-2018-000192

PATIENT
  Sex: Male

DRUGS (4)
  1. RHOPRESSA [Suspect]
     Active Substance: NETARSUDIL MESYLATE
     Indication: NORMAL TENSION GLAUCOMA
     Dosage: 2 GTT, QD
     Route: 047
  2. LUMIGAN [Concomitant]
     Active Substance: BIMATOPROST
     Indication: NORMAL TENSION GLAUCOMA
     Dosage: BOTH EYES QD
     Route: 047
  3. DORZOLAMIDE [Concomitant]
     Active Substance: DORZOLAMIDE
     Indication: NORMAL TENSION GLAUCOMA
     Dosage: BOTH EYES BID
     Route: 047
  4. TIMOLOL. [Concomitant]
     Active Substance: TIMOLOL
     Indication: NORMAL TENSION GLAUCOMA
     Dosage: BOTH EYES BID
     Route: 047

REACTIONS (1)
  - Visual acuity reduced [Recovered/Resolved]
